FAERS Safety Report 7361195-3 (Version None)
Quarter: 2011Q1

REPORT INFORMATION
  Report Type: 
  Country: None (occurrence: None)
  Receive Date: 20110315
  Receipt Date: 20110315
  Transmission Date: 20110831
  Serious: Yes (Hospitalization)
  Sender: FDA-Public Use
  Company Number: None

PATIENT
  Age: 55 Year
  Sex: Female
  Weight: 58.9676 kg

DRUGS (1)
  1. DILANTIN [Suspect]
     Indication: EPILEPSY
     Dosage: 100 MG 3 X DAY PO
     Route: 048

REACTIONS (3)
  - PETIT MAL EPILEPSY [None]
  - CONVULSION [None]
  - PRODUCT QUALITY ISSUE [None]
